FAERS Safety Report 4650204-8 (Version None)
Quarter: 2005Q2

REPORT INFORMATION
  Report Type: 
  Country: None (occurrence: None)
  Receive Date: 20050428
  Receipt Date: 20050420
  Transmission Date: 20051028
  Serious: Yes (Hospitalization)
  Sender: FDA-Public Use
  Company Number: 2005AD000030

PATIENT
  Age: 26 Year
  Sex: Male
  Weight: 85 kg

DRUGS (2)
  1. KEFLEX [Suspect]
     Indication: FINGER AMPUTATION
     Dosage: 500 MG;QID
     Dates: start: 20050418, end: 20050420
  2. LORTAB [Suspect]
     Indication: FINGER AMPUTATION
     Dates: start: 20050401, end: 20050420

REACTIONS (1)
  - PANCREATITIS ACUTE [None]
